FAERS Safety Report 15933465 (Version 2)
Quarter: 2019Q1

REPORT INFORMATION
  Report Type: Other
  Country: IT (occurrence: IT)
  Receive Date: 20190207
  Receipt Date: 20190212
  Transmission Date: 20190417
  Serious: Yes (Hospitalization)
  Sender: FDA-Public Use
  Company Number: IT-BIOCODEX SA-201801348

PATIENT
  Age: 7 Year
  Sex: Male

DRUGS (13)
  1. FRISIUM [Suspect]
     Active Substance: CLOBAZAM
     Dosage: 5.0 MG, UNK
     Dates: start: 20170810, end: 20180111
  2. DIACOMIT [Suspect]
     Active Substance: STIRIPENTOL
     Indication: EPILEPTIC ENCEPHALOPATHY
     Dosage: 2 DF, QD
     Dates: start: 20180101, end: 20180907
  3. DIACOMIT [Suspect]
     Active Substance: STIRIPENTOL
     Dosage: 75 MG, QD
     Dates: start: 20170822, end: 20170828
  4. DIACOMIT [Suspect]
     Active Substance: STIRIPENTOL
     Dosage: 350 MG, QD
     Dates: start: 20171010
  5. FRISIUM [Suspect]
     Active Substance: CLOBAZAM
     Indication: EPILEPTIC ENCEPHALOPATHY
     Dosage: 1 DF, QD
     Route: 065
     Dates: start: 20170101, end: 20180907
  6. FRISIUM [Suspect]
     Active Substance: CLOBAZAM
     Dosage: 3.0 MG, QD
     Dates: start: 20170803, end: 20170808
  7. FRISIUM [Suspect]
     Active Substance: CLOBAZAM
     Dosage: 3 MG, QD
     Dates: start: 20180223
  8. DIACOMIT [Suspect]
     Active Substance: STIRIPENTOL
     Dosage: 150 MG, QD
     Dates: start: 20170829, end: 20170904
  9. DIACOMIT [Suspect]
     Active Substance: STIRIPENTOL
     Dosage: 300 MG, QD
     Dates: start: 20170905, end: 20171009
  10. FRISIUM [Suspect]
     Active Substance: CLOBAZAM
     Dosage: 3.5 MG, QD
     Dates: start: 20180127, end: 20180222
  11. DEPAKIN [Suspect]
     Active Substance: VALPROATE SODIUM
     Indication: EPILEPTIC ENCEPHALOPATHY
     Dosage: 2 DF, QD
     Dates: start: 20180101, end: 20180902
  12. FRISIUM [Suspect]
     Active Substance: CLOBAZAM
     Dosage: 1.5 MG, QD
     Dates: start: 20170727, end: 20170802
  13. FRISIUM [Suspect]
     Active Substance: CLOBAZAM
     Dosage: 4.0 MG, QD
     Dates: start: 20180112, end: 20180126

REACTIONS (2)
  - Psychomotor retardation [Unknown]
  - Muscle rigidity [Unknown]

NARRATIVE: CASE EVENT DATE: 20180906
